FAERS Safety Report 6505796-0 (Version None)
Quarter: 2009Q4

REPORT INFORMATION
  Report Type: 
  Country: None (occurrence: None)
  Receive Date: 20091217
  Receipt Date: 20091217
  Transmission Date: 20100525
  Serious: Yes (Hospitalization)
  Sender: FDA-Public Use
  Company Number: None

PATIENT
  Sex: Male
  Weight: 17.5 kg

DRUGS (5)
  1. CYCLOPHOSPHAMIDE [Suspect]
     Dosage: 2800 MG
  2. DACTINOMYCIN [Suspect]
     Dosage: 2.54 MG
  3. G-CSF (FILGRASTIM, AMGEN) [Suspect]
     Dosage: 4410 MCG
  4. MESNA [Suspect]
     Dosage: 1680 MG
  5. VINCRISTINE SULFATE [Suspect]
     Dosage: 8.2 MG

REACTIONS (8)
  - BRAIN HERNIATION [None]
  - BRAIN OEDEMA [None]
  - CEREBROVASCULAR ACCIDENT [None]
  - CONVULSION [None]
  - HEAD INJURY [None]
  - INTRACRANIAL PRESSURE INCREASED [None]
  - MENTAL STATUS CHANGES [None]
  - SPINAL CORD DISORDER [None]
